FAERS Safety Report 6256139-1 (Version None)
Quarter: 2009Q3

REPORT INFORMATION
  Report Type: 
  Country: None (occurrence: None)
  Receive Date: 20090706
  Receipt Date: 20090624
  Transmission Date: 20100115
  Serious: Yes (Hospitalization, Other)
  Sender: FDA-Public Use
  Company Number: PHHY2009BR25803

PATIENT
  Sex: Female
  Weight: 100 kg

DRUGS (7)
  1. DIOVAN [Suspect]
     Indication: BLOOD PRESSURE
     Dosage: 160 MG/DAY
     Route: 048
  2. DIOVAN [Suspect]
     Dosage: 1 TABLET (320 MG) DAILY
     Route: 048
     Dates: start: 20070101
  3. DILACORON [Concomitant]
     Indication: HYPERTENSION
     Dosage: 80 MG, BID
     Route: 048
     Dates: start: 20070101
  4. CLONAZEPAM [Concomitant]
     Indication: INSOMNIA
     Dosage: 2 MG, QD
     Route: 048
     Dates: start: 20040101
  5. TRAZODONE HYDROCHLORIDE [Concomitant]
     Indication: INSOMNIA
     Dosage: 02 TABLETS (100 MG) AT NIGHT
     Route: 048
     Dates: start: 20081201
  6. INSULIN [Concomitant]
     Indication: DIABETES MELLITUS
     Dosage: 40 UNITS IN THE MORNING AND 20 UNITS IN THE NIGHT
     Route: 058
     Dates: start: 20050101
  7. PURAN T4 [Concomitant]
     Indication: HYPOTHYROIDISM
     Dosage: 1 TABLET (100 MCG) FASTING
     Route: 048

REACTIONS (5)
  - DEPRESSION [None]
  - INFLUENZA [None]
  - MEMORY IMPAIRMENT [None]
  - PANIC DISORDER [None]
  - WEIGHT DECREASED [None]
